FAERS Safety Report 6839005-X (Version None)
Quarter: 2010Q3

REPORT INFORMATION
  Report Type: 
  Country: None (occurrence: None)
  Receive Date: 20100713
  Receipt Date: 20090810
  Transmission Date: 20110219
  Serious: Yes (Other)
  Sender: FDA-Public Use
  Company Number: US-PFIZER INC-2007044711

PATIENT
  Age: 32 Year
  Sex: Female

DRUGS (8)
  1. CHANTIX [Suspect]
     Indication: SMOKING CESSATION THERAPY
     Dosage: 1X/DAY
     Dates: start: 20070501
  2. KLONOPIN [Concomitant]
     Indication: ANXIETY
     Dosage: 1 MG, 2X/DAY
     Route: 048
  3. TRAZODONE HYDROCHLORIDE [Concomitant]
     Indication: BIPOLAR DISORDER
     Dosage: 600 MG, 1X/DAY
     Route: 048
  4. CYMBALTA [Concomitant]
     Indication: BIPOLAR DISORDER
     Dosage: 60 MG, 1X/DAY
     Route: 048
  5. TRILEPTAL [Concomitant]
     Indication: BIPOLAR DISORDER
     Dosage: 300 MG, 3X/DAY
     Route: 048
  6. PALIPERIDONE [Concomitant]
     Dosage: 9 MG, UNK
     Route: 048
  7. SPIRIVA [Concomitant]
     Indication: EMPHYSEMA
     Dosage: 1 INHALATION, 1X/DAY
  8. ALBUTEROL [Suspect]
     Indication: ASTHMA
     Dosage: INHALATION

REACTIONS (7)
  - ANXIETY [None]
  - HOSTILITY [None]
  - IRRITABILITY [None]
  - LOWER RESPIRATORY TRACT INFECTION [None]
  - MALAISE [None]
  - NERVOUSNESS [None]
  - SUICIDAL IDEATION [None]
